FAERS Safety Report 16751092 (Version 3)
Quarter: 2019Q3

REPORT INFORMATION
  Report Type: Report from Study
  Country: CN (occurrence: CN)
  Receive Date: 20190828
  Receipt Date: 20190917
  Transmission Date: 20191005
  Serious: Yes (Hospitalization)
  Sender: FDA-Public Use
  Company Number: CN-ROCHE-2394795

PATIENT

DRUGS (8)
  1. LEVOFLOXACIN. [Concomitant]
     Active Substance: LEVOFLOXACIN
     Indication: EYE PAIN
     Route: 047
     Dates: start: 20190808
  2. INDOMETHACIN [INDOMETACIN] [Concomitant]
     Active Substance: INDOMETHACIN
     Route: 065
     Dates: start: 20190805
  3. MAGNESIUM ISOGLYCYRRHIZINATE [Concomitant]
     Active Substance: MAGNESIUM ISOGLYCYRRHIZINATE
     Indication: PROPHYLAXIS
     Route: 042
     Dates: start: 20190810
  4. OFLOXACIN. [Concomitant]
     Active Substance: OFLOXACIN
     Indication: EYE PAIN
     Route: 047
     Dates: start: 20190808
  5. LORATADINE. [Concomitant]
     Active Substance: LORATADINE
     Indication: HYPERSENSITIVITY
     Route: 065
     Dates: start: 20190806, end: 20190809
  6. VEMURAFENIB. [Suspect]
     Active Substance: VEMURAFENIB
     Indication: MALIGNANT MELANOMA
     Route: 048
     Dates: start: 20190726, end: 20190806
  7. DIAMMONIUM GLYCYRRHIZINATE [Concomitant]
     Active Substance: HERBALS\DIAMMONIUM GLYCYRRHIZINATE
     Indication: PROPHYLAXIS
     Route: 048
     Dates: start: 20190810, end: 20190815
  8. PREDNISONE ACETATE [Concomitant]
     Active Substance: PREDNISONE ACETATE
     Indication: HYPERSENSITIVITY
     Route: 065
     Dates: start: 20190807

REACTIONS (3)
  - Eye pain [Not Recovered/Not Resolved]
  - Drug eruption [Recovered/Resolved]
  - Dermatitis acneiform [Recovered/Resolved]

NARRATIVE: CASE EVENT DATE: 20190805
